FAERS Safety Report 8255552-0 (Version None)
Quarter: 2012Q1

REPORT INFORMATION
  Report Type: 
  Country: None (occurrence: None)
  Receive Date: 20120322
  Receipt Date: 20120103
  Transmission Date: 20120608
  Serious: Yes (Hospitalization)
  Sender: FDA-Public Use
  Company Number: UTC-013037

PATIENT
  Age: 76 Year
  Sex: Female
  Weight: 101 kg

DRUGS (6)
  1. COUMADIN [Concomitant]
  2. DIGOXIN [Concomitant]
  3. PLAVIX [Concomitant]
  4. ADCIRCA [Concomitant]
  5. DIURETICS (DIURETICS) [Concomitant]
  6. TYVASO [Suspect]
     Indication: PULMONARY ARTERIAL HYPERTENSION
     Dosage: 24-54 MICROGRAMS (4 IN 1 D) INHALATION
     Route: 055
     Dates: start: 20100427

REACTIONS (1)
  - BRONCHITIS [None]
